FAERS Safety Report 6272418-6 (Version None)
Quarter: 2009Q3

REPORT INFORMATION
  Report Type: 
  Country: None (occurrence: None)
  Receive Date: 20090717
  Receipt Date: 20090713
  Transmission Date: 20100115
  Serious: Yes (Other)
  Sender: FDA-Public Use
  Company Number: US-MERCK-0906USA05251

PATIENT
  Age: 34 Month
  Sex: Male

DRUGS (3)
  1. SINGULAIR [Suspect]
     Indication: ASTHMA
     Route: 048
     Dates: start: 20071001, end: 20090611
  2. ALBUTEROL [Concomitant]
     Route: 065
  3. PULMICORT-100 [Concomitant]
     Route: 065

REACTIONS (3)
  - AGGRESSION [None]
  - MENTAL DISORDER [None]
  - PHYSICAL ASSAULT [None]
